FAERS Safety Report 6425991-9 (Version None)
Quarter: 2009Q4

REPORT INFORMATION
  Report Type: 
  Country: None (occurrence: None)
  Receive Date: 20091103
  Receipt Date: 20091020
  Transmission Date: 20100525
  Serious: Yes (Other)
  Sender: FDA-Public Use
  Company Number: PHEH2008US03883

PATIENT
  Sex: Female

DRUGS (4)
  1. AREDIA [Suspect]
  2. ZOMETA [Suspect]
  3. SYNTHROID [Concomitant]
  4. NEXIUM [Concomitant]

REACTIONS (26)
  - ACTINIC KERATOSIS [None]
  - ANXIETY [None]
  - ARTHRITIS [None]
  - BASAL CELL CARCINOMA [None]
  - CANDIDIASIS [None]
  - CARDIAC OPERATION [None]
  - CHEST X-RAY ABNORMAL [None]
  - CYST [None]
  - EMOTIONAL DISTRESS [None]
  - INFECTION [None]
  - INFLAMMATION [None]
  - INJURY [None]
  - LUNG HYPERINFLATION [None]
  - LUNG NEOPLASM [None]
  - OSTEONECROSIS [None]
  - OSTEOPENIA [None]
  - PAIN [None]
  - PHYSICAL DISABILITY [None]
  - PURPURA [None]
  - ROSACEA [None]
  - SCAR [None]
  - SEBORRHOEIC KERATOSIS [None]
  - SKIN DISORDER [None]
  - SKIN OPERATION [None]
  - SPONDYLOLISTHESIS [None]
  - SQUAMOUS CELL CARCINOMA OF SKIN [None]
